FAERS Safety Report 15449997 (Version 1)
Quarter: 2018Q4

REPORT INFORMATION
  Report Type: Spontaneous
  Country: RO (occurrence: RO)
  Receive Date: 20181001
  Receipt Date: 20181001
  Transmission Date: 20190204
  Serious: Yes (Life-Threatening, Hospitalization, Other)
  Sender: FDA-Public Use
  Company Number: RO-STRIDES ARCOLAB LIMITED-2018SP008428

PATIENT

DRUGS (4)
  1. AMOXICILLIN AND CLAVULA. POTASSIUM /01000301/ [Suspect]
     Active Substance: AMOXICILLIN\CLAVULANATE POTASSIUM
     Indication: TOOTH ABSCESS
  2. AMOXICILLIN AND CLAVULA. POTASSIUM /01000301/ [Suspect]
     Active Substance: AMOXICILLIN\CLAVULANATE POTASSIUM
     Indication: ANTIBIOTIC THERAPY
     Dosage: UNK
     Route: 065
  3. PARACETAMOL [Suspect]
     Active Substance: ACETAMINOPHEN
     Indication: TOOTH ABSCESS
     Dosage: UNK
     Route: 065
  4. IBUPROFEN. [Suspect]
     Active Substance: IBUPROFEN
     Indication: TOOTH ABSCESS
     Dosage: UNK
     Route: 065

REACTIONS (27)
  - Photophobia [Recovered/Resolved]
  - Purulent discharge [Recovered/Resolved]
  - Lip ulceration [Recovered/Resolved]
  - Genital ulceration [Recovered/Resolved]
  - Toxic epidermal necrolysis [Recovered/Resolved]
  - Hyperglycaemia [Recovered/Resolved]
  - Conjunctival hyperaemia [Recovered/Resolved]
  - Lymphadenopathy [Recovered/Resolved]
  - Tachycardia [Recovered/Resolved]
  - Thrombocytopenia [Recovered/Resolved]
  - Mucosal ulceration [Recovered/Resolved]
  - Rash morbilliform [Recovered/Resolved]
  - Sepsis [Recovered/Resolved]
  - Feeding disorder [Unknown]
  - Blood pressure decreased [Unknown]
  - Nikolsky^s sign [Recovered/Resolved]
  - Chills [Recovered/Resolved]
  - Hepatomegaly [Unknown]
  - Headache [Recovered/Resolved]
  - Pyrexia [Recovered/Resolved]
  - Mouth ulceration [Recovered/Resolved]
  - Staphylococcal infection [Recovered/Resolved]
  - General physical condition abnormal [Recovered/Resolved]
  - Eyelid oedema [Recovered/Resolved]
  - Systemic inflammatory response syndrome [Recovered/Resolved]
  - Myalgia [Recovered/Resolved]
  - Rash erythematous [Recovered/Resolved]
